FAERS Safety Report 4428821-X (Version None)
Quarter: 2004Q3

REPORT INFORMATION
  Report Type: 
  Country: None (occurrence: None)
  Receive Date: 20040818
  Receipt Date: 20040701
  Transmission Date: 20050211
  Serious: Yes (Other)
  Sender: FDA-Public Use
  Company Number: IE-GLAXOSMITHKLINE-B0338321A

PATIENT
  Sex: Female

DRUGS (2)
  1. PROCHLORPERAZINE [Suspect]
     Indication: NAUSEA
     Dosage: 12.5MG PER DAY
     Route: 030
  2. KEMADRIN [Suspect]
     Indication: NAUSEA
     Route: 042

REACTIONS (4)
  - AGITATION [None]
  - CONFUSIONAL STATE [None]
  - DYSTONIA [None]
  - HALLUCINATION [None]
